FAERS Safety Report 7397463-9 (Version None)
Quarter: 2011Q2

REPORT INFORMATION
  Report Type: 
  Country: None (occurrence: None)
  Receive Date: 20110401
  Receipt Date: 20110401
  Transmission Date: 20111010
  Serious: Yes (Life-Threatening)
  Sender: FDA-Public Use
  Company Number: None

PATIENT
  Age: 52 Year
  Sex: Female
  Weight: 95.2554 kg

DRUGS (2)
  1. VASOTEC [Suspect]
     Indication: HYPERSENSITIVITY
     Dosage: 10 MG 1 QD
     Dates: start: 19780101
  2. MAXZIDE-25 [Suspect]
     Indication: HYPERSENSITIVITY
     Dates: start: 19780101

REACTIONS (2)
  - PRODUCT QUALITY ISSUE [None]
  - OEDEMA PERIPHERAL [None]
